FAERS Safety Report 25829087 (Version 1)
Quarter: 2025Q3

REPORT INFORMATION
  Report Type: Spontaneous
  Country: EU (occurrence: EU)
  Receive Date: 20250922
  Receipt Date: 20250922
  Transmission Date: 20251021
  Serious: Yes (Death)
  Sender: JOHNSON AND JOHNSON
  Company Number: EU-JNJFOC-20250928141

PATIENT
  Age: 40 Year
  Sex: Female
  Weight: 86 kg

DRUGS (1)
  1. TRABECTEDIN [Suspect]
     Active Substance: TRABECTEDIN
     Indication: Sarcoma metastatic
     Dates: start: 20250519, end: 20250519

REACTIONS (4)
  - Respiratory failure [Fatal]
  - Pancytopenia [Fatal]
  - Renal failure [Fatal]
  - Rhabdomyolysis [Fatal]

NARRATIVE: CASE EVENT DATE: 20250501
